FAERS Safety Report 11038303 (Version 1)
Quarter: 2015Q2

REPORT INFORMATION
  Report Type: Spontaneous
  Country: AU (occurrence: AU)
  Receive Date: 20150416
  Receipt Date: 20150416
  Transmission Date: 20150821
  Serious: Yes (Other)
  Sender: FDA-Public Use
  Company Number: AU-PFIZER INC-2015122906

PATIENT
  Sex: Female

DRUGS (1)
  1. LYRICA [Suspect]
     Active Substance: PREGABALIN
     Dosage: UNK

REACTIONS (6)
  - Hypopnoea [Unknown]
  - Peripheral swelling [Unknown]
  - Visual impairment [Unknown]
  - Tremor [Unknown]
  - Dyskinesia [Unknown]
  - Feeling abnormal [Unknown]
